FAERS Safety Report 10027475 (Version 2)
Quarter: 2014Q2

REPORT INFORMATION
  Report Type: Spontaneous
  Country: JP (occurrence: None)
  Receive Date: 20140318
  Receipt Date: 20140620
  Transmission Date: 20141212
  Serious: Yes (Hospitalization)
  Sender: FDA-Public Use
  Company Number: VAL_03034_2014

PATIENT
  Age: 29 Year
  Sex: Female
  Weight: 56 kg

DRUGS (11)
  1. PARLODEL (PARLODEL-BROMOCRIPTINE MESILATE) (NOT SPECIFIED) [Suspect]
     Indication: PROLACTINOMA
     Route: 048
     Dates: start: 201211, end: 20130607
  2. LACTEC [Concomitant]
  3. PRIMPERAN [Concomitant]
  4. LACTEC G [Concomitant]
  5. SOLITA-T 3G [Concomitant]
  6. VITAMEDIN [Concomitant]
  7. BFLUID [Concomitant]
  8. MARZULENE ES [Concomitant]
  9. MAGMITT [Concomitant]
  10. CEREKINON [Concomitant]
  11. CALONAL [Concomitant]

REACTIONS (9)
  - Blood prolactin increased [None]
  - Abdominal pain [None]
  - Pregnancy [None]
  - Therapy cessation [None]
  - Uterine hypotonus [None]
  - Headache [None]
  - Vomiting [None]
  - Maternal exposure during pregnancy [None]
  - Induced labour [None]
